FAERS Safety Report 6367112-7 (Version None)
Quarter: 2009Q3

REPORT INFORMATION
  Report Type: 
  Country: None (occurrence: None)
  Receive Date: 20090921
  Receipt Date: 20090709
  Transmission Date: 20100115
  Serious: No
  Sender: FDA-Public Use
  Company Number: US-BAYER-200926280NA

PATIENT
  Age: 32 Year
  Sex: Female
  Weight: 91 kg

DRUGS (3)
  1. MIRENA [Suspect]
     Indication: CONTRACEPTION
     Dosage: CONTINUOUS DELIVERY
     Route: 015
     Dates: start: 20090616
  2. IBUPROFEN [Concomitant]
     Indication: ABDOMINAL PAIN
  3. PREVACID [Concomitant]
     Indication: GASTRIC ULCER

REACTIONS (2)
  - ABDOMINAL PAIN [None]
  - MENORRHAGIA [None]
